FAERS Safety Report 17024064 (Version 2)
Quarter: 2019Q4

REPORT INFORMATION
  Report Type: Report from Study
  Country: CO (occurrence: CO)
  Receive Date: 20191113
  Receipt Date: 20191129
  Transmission Date: 20200122
  Serious: Yes (Hospitalization, Other)
  Sender: FDA-Public Use
  Company Number: CO-BRISTOL-MYERS SQUIBB COMPANY-BMS-2019-097234

PATIENT
  Age: 75 Year
  Sex: Female

DRUGS (1)
  1. NIVOLUMAB [Suspect]
     Active Substance: NIVOLUMAB
     Indication: HEAD AND NECK CANCER
     Dosage: 117 MILLIGRAM, Q2WK
     Route: 042
     Dates: start: 20190822

REACTIONS (7)
  - Syncope [Recovering/Resolving]
  - Headache [Recovering/Resolving]
  - Psychiatric symptom [Recovering/Resolving]
  - Drug ineffective [Unknown]
  - Oropharyngeal pain [Recovering/Resolving]
  - Gastritis erosive [Recovering/Resolving]
  - Dyspnoea [Recovering/Resolving]

NARRATIVE: CASE EVENT DATE: 20191003
